FAERS Safety Report 6057273-1 (Version None)
Quarter: 2009Q1

REPORT INFORMATION
  Report Type: 
  Country: None (occurrence: None)
  Receive Date: 20090129
  Receipt Date: 20080716
  Transmission Date: 20090719
  Serious: Yes (Other)
  Sender: FDA-Public Use
  Company Number: A0738922A

PATIENT
  Age: 47 Year

DRUGS (8)
  1. WELLBUTRIN [Suspect]
     Indication: DRUG USE FOR UNKNOWN INDICATION
     Dosage: 3TAB PER DAY
     Route: 048
  2. XANAX [Suspect]
     Indication: DRUG USE FOR UNKNOWN INDICATION
     Dosage: 6MG PER DAY
     Route: 048
  3. OXYCONTIN [Suspect]
     Dosage: 100MG PER DAY
     Route: 048
  4. ROXICODONE [Suspect]
     Dosage: 120MG PER DAY
     Route: 048
  5. SOMA [Suspect]
     Indication: DRUG USE FOR UNKNOWN INDICATION
     Dosage: 4TAB PER DAY
     Route: 048
  6. ADDERALL 10 [Suspect]
     Indication: DRUG USE FOR UNKNOWN INDICATION
     Route: 065
  7. ASPIRIN [Suspect]
     Route: 048
  8. YASMIN [Suspect]
     Indication: CONTRACEPTION

REACTIONS (2)
  - PYREXIA [None]
  - SUICIDAL IDEATION [None]
